FAERS Safety Report 10102738 (Version 2)
Quarter: 2014Q2

REPORT INFORMATION
  Report Type: Other
  Country: None (occurrence: US)
  Receive Date: 20140424
  Receipt Date: 20140623
  Transmission Date: 20141212
  Serious: Yes (Hospitalization, Other)
  Sender: FDA-Public Use
  Company Number: US-GSKPPD-2014GSK000341

PATIENT
  Age: 57 Year
  Sex: Female

DRUGS (7)
  1. AVANDIA [Suspect]
     Indication: DIABETES MELLITUS
     Route: 048
     Dates: start: 20070430, end: 20070509
  2. AVANDAMET [Suspect]
     Indication: DIABETES MELLITUS
     Dosage: 2-500MG
     Route: 048
     Dates: start: 20070201, end: 20070904
  3. ASPIRIN [Concomitant]
     Route: 048
     Dates: start: 20070430, end: 20070509
  4. AVALIDE [Concomitant]
     Dosage: 150/12.5
     Route: 048
     Dates: start: 20070430, end: 20070509
  5. NITROGLYCERIN [Concomitant]
     Route: 060
     Dates: start: 20070430, end: 20070509
  6. LABETALOL [Concomitant]
     Route: 048
     Dates: start: 20070430, end: 20070509
  7. CARDIZEM [Concomitant]
     Route: 048
     Dates: start: 20070430, end: 20070509

REACTIONS (2)
  - Myocardial ischaemia [None]
  - Angina unstable [Recovered/Resolved]
